FAERS Safety Report 10151950 (Version 1)
Quarter: 2014Q2

REPORT INFORMATION
  Report Type: Spontaneous
  Country: US (occurrence: US)
  Receive Date: 20140505
  Receipt Date: 20140505
  Transmission Date: 20141212
  Serious: Yes (Disabling, Other)
  Sender: FDA-Public Use
  Company Number: US-ELI_LILLY_AND_COMPANY-US201404009455

PATIENT
  Sex: Male

DRUGS (4)
  1. HUMALOG LISPRO [Suspect]
     Indication: TYPE 2 DIABETES MELLITUS
     Dosage: 10 U, EACH MORNING
     Route: 065
  2. HUMALOG LISPRO [Suspect]
     Dosage: 20 U, QD
     Route: 065
  3. HUMALOG LISPRO [Suspect]
     Dosage: 60 U, EACH EVENING
     Route: 065
  4. LANTUS [Concomitant]
     Dosage: UNK, EACH EVENING

REACTIONS (3)
  - Gangrene [Unknown]
  - Diabetes mellitus [Unknown]
  - Haemorrhage [Unknown]
